FAERS Safety Report 6071544-4 (Version None)
Quarter: 2009Q1

REPORT INFORMATION
  Report Type: 
  Country: None (occurrence: None)
  Receive Date: 20090205
  Receipt Date: 20090205
  Transmission Date: 20090719
  Serious: No
  Sender: FDA-Public Use
  Company Number: None

PATIENT
  Age: 34 Year
  Sex: Female
  Weight: 68 kg

DRUGS (3)
  1. NORMOSOL-R IN PLASTIC CONTAINER [Suspect]
     Indication: FLUID REPLACEMENT
     Dosage: 1000 ML X4 OVER 4 HOURS IV
     Route: 042
     Dates: end: 20090128
  2. EPIRURAL ROPIVACAINE [Concomitant]
  3. FENTANYL-100 [Concomitant]

REACTIONS (4)
  - CHEST DISCOMFORT [None]
  - COUGH [None]
  - DRUG EXPOSURE DURING PREGNANCY [None]
  - DYSPNOEA [None]
